FAERS Safety Report 5050644-1 (Version None)
Quarter: 2006Q3

REPORT INFORMATION
  Report Type: 
  Country: None (occurrence: None)
  Receive Date: 20060710
  Receipt Date: 20060704
  Transmission Date: 20061208
  Serious: Yes (Other)
  Sender: FDA-Public Use
  Company Number: GXKR2006DE03812

PATIENT
  Age: 28 Year
  Sex: Female

DRUGS (1)
  1. PARACETAMOL (NGX)(PARACETAMOL) TABLET [Suspect]
     Dosage: 500 MG, 9QD, ORAL
     Route: 048
     Dates: start: 20030101

REACTIONS (3)
  - AFFECT LABILITY [None]
  - ALCOHOLISM [None]
  - DRUG DEPENDENCE [None]
